FAERS Safety Report 26021093 (Version 1)
Quarter: 2025Q4

REPORT INFORMATION
  Report Type: Report from Study
  Country: US (occurrence: US)
  Receive Date: 20251110
  Receipt Date: 20251110
  Transmission Date: 20260118
  Serious: Yes (Hospitalization, Other)
  Sender: BIOCODEX
  Company Number: US-BIOCODEX2-2025001719

PATIENT
  Sex: Female
  Weight: 97.5 kg

DRUGS (4)
  1. DIACOMIT [Suspect]
     Active Substance: STIRIPENTOL
     Indication: Severe myoclonic epilepsy of infancy
     Dosage: 1000 MG, 500 MG, AND 1000 MG BY MOUTH IN THREE SEPARATE DOSES EACH DAY
     Dates: start: 20240514
  2. DIACOMIT [Suspect]
     Active Substance: STIRIPENTOL
  3. CLOBAZAM [Concomitant]
     Active Substance: CLOBAZAM
     Indication: Severe myoclonic epilepsy of infancy
  4. CLOBAZAM [Concomitant]
     Active Substance: CLOBAZAM

REACTIONS (2)
  - Hospitalisation [Unknown]
  - Drug ineffective [Unknown]
